FAERS Safety Report 18907021 (Version 1)
Quarter: 2021Q1

REPORT INFORMATION
  Report Type: Spontaneous
  Country: GB (occurrence: GB)
  Receive Date: 20210217
  Receipt Date: 20210217
  Transmission Date: 20210420
  Serious: Yes (Other)
  Sender: FDA-Public Use
  Company Number: GB-FRESENIUS KABI-FK202101566

PATIENT
  Age: 38 Year
  Sex: Male

DRUGS (2)
  1. STEROIDS [Suspect]
     Active Substance: UNSPECIFIED INGREDIENT
     Indication: SYMPTOMATIC TREATMENT
     Route: 048
  2. DEXAMETHASONE INJECTION (MANUFACTURER UNKNOWN) [Suspect]
     Active Substance: DEXAMETHASONE
     Indication: STRIDOR
     Route: 042

REACTIONS (2)
  - Adrenocortical insufficiency acute [Recovered/Resolved]
  - Diabetic ketoacidosis [Recovered/Resolved]
